FAERS Safety Report 11534249 (Version 1)
Quarter: 2015Q3

REPORT INFORMATION
  Report Type: Spontaneous
  Country: US (occurrence: None)
  Receive Date: 20150918
  Receipt Date: 20150918
  Transmission Date: 20151125
  Serious: Yes (Hospitalization)
  Sender: FDA-Public Use
  Company Number: None

PATIENT
  Age: 59 Year
  Sex: Male
  Weight: 92.08 kg

DRUGS (2)
  1. PACLITAXEL. [Suspect]
     Active Substance: PACLITAXEL
     Dates: end: 20150914
  2. CARBOPLATIN. [Suspect]
     Active Substance: CARBOPLATIN
     Dates: end: 20150914

REACTIONS (5)
  - Hypoxia [None]
  - Pneumonia [None]
  - Body temperature increased [None]
  - Supraventricular tachycardia [None]
  - Toxicity to various agents [None]

NARRATIVE: CASE EVENT DATE: 20150821
